FAERS Safety Report 6563966-X (Version None)
Quarter: 2010Q1

REPORT INFORMATION
  Report Type: 
  Country: None (occurrence: None)
  Receive Date: 20100131
  Receipt Date: 20100122
  Transmission Date: 20100710
  Serious: Yes (Hospitalization)
  Sender: FDA-Public Use
  Company Number: US-JNJFOC-20091004835

PATIENT
  Sex: Female
  Weight: 45.36 kg

DRUGS (2)
  1. DURAGESIC-100 [Suspect]
     Indication: BACK PAIN
     Route: 062
     Dates: start: 20010101, end: 20091009
  2. OXYCODONE [Concomitant]
     Indication: PAIN
     Route: 048

REACTIONS (3)
  - ANXIETY [None]
  - BILE DUCT OBSTRUCTION [None]
  - INAPPROPRIATE SCHEDULE OF DRUG ADMINISTRATION [None]
